FAERS Safety Report 4971601-7 (Version None)
Quarter: 2006Q2

REPORT INFORMATION
  Report Type: 
  Country: None (occurrence: None)
  Receive Date: 20060407
  Receipt Date: 20060227
  Transmission Date: 20061013
  Serious: Yes (Other)
  Sender: FDA-Public Use
  Company Number: 2006028899

PATIENT
  Age: 48 Year
  Sex: Male
  Weight: 113.3993 kg

DRUGS (5)
  1. NEOSPORIN [Suspect]
     Indication: LACERATION
     Dosage: A LIGHT TOPICAL COATING TWICE/DAY, TOPICAL
     Route: 061
     Dates: start: 20050501, end: 20050101
  2. CETIRIZINE HCL [Concomitant]
  3. SERETIDE MITE (FLUTICASONE PROPIONATE, SALMETEROL XINAFOATE) [Concomitant]
  4. ASPIRIN [Concomitant]
  5. SALBUTAMOL (SALBUTAMOL) [Concomitant]

REACTIONS (14)
  - APPLICATION SITE ERYTHEMA [None]
  - BLOOD PRESSURE DIASTOLIC INCREASED [None]
  - CULTURE WOUND POSITIVE [None]
  - ESCHERICHIA INFECTION [None]
  - EXCORIATION [None]
  - INDURATION [None]
  - JOINT INJURY [None]
  - JOINT SWELLING [None]
  - SKIN DISCOLOURATION [None]
  - SKIN ULCER [None]
  - VENOUS INSUFFICIENCY [None]
  - WALKING AID USER [None]
  - WEIGHT DECREASED [None]
  - WOUND [None]
